FAERS Safety Report 23410049 (Version 4)
Quarter: 2025Q1

REPORT INFORMATION
  Report Type: Spontaneous
  Country: US (occurrence: US)
  Receive Date: 20240117
  Receipt Date: 20250217
  Transmission Date: 20250408
  Serious: Yes (Other)
  Sender: MERCK SHARP & DOHME LLC
  Company Number: US-009507513-2401USA006739

PATIENT
  Age: 67 Year
  Sex: Female

DRUGS (3)
  1. KEYTRUDA [Suspect]
     Active Substance: PEMBROLIZUMAB
     Indication: Non-small cell lung cancer
     Dosage: DOSE DESCRIPTION : 200 MILLIGRAM, Q3W (EVERY 21 DAYS)?DAILY DOSE : 9.4 MILLIGRAM?REGIMEN DOSE : 1...
     Route: 042
     Dates: start: 20231012, end: 202402
  2. METOPROLOL [Concomitant]
     Active Substance: METOPROLOL
  3. VITAMINS [Concomitant]
     Active Substance: VITAMINS

REACTIONS (3)
  - Adrenal insufficiency [Not Recovered/Not Resolved]
  - Pruritus [Not Recovered/Not Resolved]
  - Immune-mediated dermatitis [Not Recovered/Not Resolved]
